FAERS Safety Report 10861136 (Version 1)
Quarter: 2015Q1

REPORT INFORMATION
  Report Type: Spontaneous
  Country: US (occurrence: None)
  Receive Date: 20150218
  Receipt Date: 20150218
  Transmission Date: 20150721
  Serious: Yes (Life-Threatening, Hospitalization)
  Sender: FDA-Public Use
  Company Number: None

PATIENT
  Age: 77 Year
  Sex: Female
  Weight: 73.2 kg

DRUGS (2)
  1. DABIGATRAN [Suspect]
     Active Substance: DABIGATRAN
     Indication: ATRIAL FIBRILLATION
     Dosage: 1 PILL
     Route: 048
  2. DABIGATRAN [Suspect]
     Active Substance: DABIGATRAN
     Indication: CEREBROVASCULAR ACCIDENT
     Dosage: 1 PILL
     Route: 048

REACTIONS (5)
  - Haematoma [None]
  - Brain contusion [None]
  - Fall [None]
  - Brain injury [None]
  - Escherichia test positive [None]

NARRATIVE: CASE EVENT DATE: 20140615
